FAERS Safety Report 5071404-1 (Version None)
Quarter: 2006Q3

REPORT INFORMATION
  Report Type: 
  Country: None (occurrence: None)
  Receive Date: 20060804
  Receipt Date: 20060411
  Transmission Date: 20061208
  Serious: No
  Sender: FDA-Public Use
  Company Number: US-AMGEN-US175879

PATIENT
  Sex: Female
  Weight: 73.1 kg

DRUGS (11)
  1. ARANESP [Suspect]
     Indication: RENAL TRANSPLANT
     Route: 058
     Dates: start: 20050222, end: 20060411
  2. PREDNISONE TAB [Concomitant]
     Dates: start: 20050222
  3. PROGRAF [Concomitant]
     Dates: start: 20050222
  4. SENSIPAR [Concomitant]
     Dates: start: 20050622
  5. ASPIRIN [Concomitant]
     Dates: start: 20050228
  6. ACTONEL [Concomitant]
     Dates: start: 20050621
  7. MAGNESIUM OXIDE [Concomitant]
     Dates: start: 20051222
  8. VALCYTET [Concomitant]
     Dates: start: 20050224, end: 20060315
  9. ATENOLOL [Concomitant]
     Dates: start: 20050228
  10. NORVASC [Concomitant]
     Dates: start: 20050228
  11. CELLCEPT [Concomitant]
     Dates: start: 20050222, end: 20051213

REACTIONS (1)
  - THERAPEUTIC RESPONSE DECREASED [None]
